FAERS Safety Report 5527627-8 (Version None)
Quarter: 2007Q4

REPORT INFORMATION
  Report Type: 
  Country: None (occurrence: None)
  Receive Date: 20071123
  Receipt Date: 20071112
  Transmission Date: 20080405
  Serious: Yes (Death)
  Sender: FDA-Public Use
  Company Number: 2007US002846

PATIENT
  Age: 43 Year
  Sex: Male

DRUGS (8)
  1. AMBISOME [Suspect]
     Indication: CRYPTOCOCCOSIS
     Dosage: 250 MEQ/ML, UID/QD, IV NOS; 225 MG, UID/QD, IV NOS
     Route: 042
     Dates: start: 20070405, end: 20070406
  2. AMBISOME [Suspect]
     Indication: CRYPTOCOCCOSIS
     Dosage: 250 MEQ/ML, UID/QD, IV NOS; 225 MG, UID/QD, IV NOS
     Route: 042
     Dates: start: 20070407, end: 20070411
  3. PROTAPHAN (INSULIN ISOPHANE, HUMAN BIOSYNTHETIC) [Concomitant]
  4. ANCOTIL (FLUCYTOSINE) [Concomitant]
  5. ROCEPHIN [Concomitant]
  6. MEROPEN (MEROPENEM) [Concomitant]
  7. TARGOCID [Concomitant]
  8. VFEND [Concomitant]

REACTIONS (8)
  - CHILLS [None]
  - DISSEMINATED INTRAVASCULAR COAGULATION [None]
  - IMMUNODEFICIENCY [None]
  - NAUSEA [None]
  - PAIN IN EXTREMITY [None]
  - PYREXIA [None]
  - SHOCK [None]
  - STAPHYLOCOCCAL SEPSIS [None]
